FAERS Safety Report 5877973-3 (Version None)
Quarter: 2008Q3

REPORT INFORMATION
  Report Type: 
  Country: None (occurrence: None)
  Receive Date: 20080911
  Receipt Date: 20080829
  Transmission Date: 20090109
  Serious: Yes (Other)
  Sender: FDA-Public Use
  Company Number: JP-ASTRAZENECA-2008AP05967

PATIENT
  Age: 20830 Day
  Sex: Male

DRUGS (7)
  1. SEROQUEL [Suspect]
     Indication: SCHIZOPHRENIA
     Route: 048
     Dates: start: 20070115, end: 20080807
  2. DEPAKENE [Suspect]
     Indication: SCHIZOPHRENIA
     Route: 048
     Dates: start: 20070115
  3. SERENACE [Suspect]
     Indication: SCHIZOPHRENIA
     Route: 048
     Dates: start: 20070115
  4. BIPERIDEN HYDROCHLORIDE TAB [Concomitant]
     Indication: SCHIZOPHRENIA
     Route: 048
     Dates: start: 20070115
  5. LEVOTOMIN [Concomitant]
     Indication: SCHIZOPHRENIA
     Route: 048
     Dates: start: 20070115
  6. BERIZYM [Concomitant]
     Indication: PEPTIC ULCER
     Route: 048
     Dates: start: 20070115
  7. PURSENNID [Concomitant]
     Indication: CONSTIPATION
     Route: 048
     Dates: start: 20070115

REACTIONS (4)
  - EPISTAXIS [None]
  - HAEMORRHAGE SUBCUTANEOUS [None]
  - PANCYTOPENIA [None]
  - PLATELET COUNT DECREASED [None]
